FAERS Safety Report 8590816 (Version 2)
Quarter: 2012Q4

REPORT INFORMATION
  Report Type: 
  Country: US (occurrence: US)
  Receive Date: 20120601
  Receipt Date: 20121011
  Transmission Date: 20130627
  Serious: Yes (Other)
  Sender: FDA-Public Use
  Company Number: US-BAYER-2012-053180

PATIENT
  Age: 28 Year
  Sex: Female
  Weight: 124.72 kg

DRUGS (10)
  1. YAZ [Suspect]
     Dosage: UNK
     Dates: start: 200404, end: 200608
  2. YASMIN [Suspect]
     Dosage: UNK
     Dates: start: 200404, end: 200608
  3. CLARITIN [Concomitant]
     Indication: MULTIPLE ALLERGIES
     Dosage: 10 mg, UNK
     Dates: start: 2000, end: 2011
  4. SINGULAIR [Concomitant]
     Indication: MULTIPLE ALLERGIES
     Dosage: 10 mg, UNK
     Dates: start: 2000, end: 2011
  5. PROMETHAZINE [Concomitant]
     Dosage: 25 mg, UNK
  6. NEXIUM [Concomitant]
     Dosage: 40 mg, UNK
  7. PROPOXYPHENE NAPSYLATE W/ACETAMINOPHENE [Concomitant]
     Dosage: 100-65
  8. ALBUTEROL [Concomitant]
  9. ALBUTEROL [Concomitant]
     Dosage: 90 ?g, UNK
  10. ACIPHEX [Concomitant]

REACTIONS (9)
  - Gallbladder injury [None]
  - Cholecystitis chronic [None]
  - Scar [None]
  - Injury [None]
  - General physical health deterioration [None]
  - Pain [None]
  - Anxiety [None]
  - Emotional distress [None]
  - Pain [None]
